FAERS Safety Report 25171018 (Version 2)
Quarter: 2025Q2

REPORT INFORMATION
  Report Type: Report from Study
  Country: US (occurrence: None)
  Receive Date: 20250408
  Receipt Date: 20250515
  Transmission Date: 20250717
  Serious: Yes (Hospitalization, Other)
  Sender: BENUVIA THERAPEUTICS
  Company Number: US-Benuvia Operations LLC.-BEN202503-000002

PATIENT

DRUGS (3)
  1. DRONABINOL [Suspect]
     Active Substance: DRONABINOL
     Indication: Product used for unknown indication
     Dosage: 2.5 MG TO 10 MG
  2. NABIXIMOLS [Suspect]
     Active Substance: NABIXIMOLS
     Indication: Product used for unknown indication
  3. EPIDIOLEX [Suspect]
     Active Substance: CANNABIDIOL
     Indication: Product used for unknown indication

REACTIONS (1)
  - Nephrolithiasis [Recovered/Resolved]

NARRATIVE: CASE EVENT DATE: 20250226
